FAERS Safety Report 5277073-X (Version None)
Quarter: 2007Q1

REPORT INFORMATION
  Report Type: 
  Country: None (occurrence: None)
  Receive Date: 20070327
  Receipt Date: 20070316
  Transmission Date: 20070707
  Serious: Yes (Other)
  Sender: FDA-Public Use
  Company Number: PHNU2005DE02424

PATIENT
  Age: 69 Year
  Sex: Female
  Weight: 74 kg

DRUGS (6)
  1. ZOMETA [Suspect]
     Indication: METASTASES TO BONE
     Dosage: 4 MG, QMO
     Route: 042
     Dates: start: 20010401, end: 20050601
  2. DURAGESIC-100 [Concomitant]
     Indication: PAIN
     Route: 062
  3. DICLOFENAC SODIUM [Concomitant]
     Indication: PAIN
     Dosage: 150 MG/DAY
     Route: 048
  4. NEURONTIN [Concomitant]
     Indication: PAIN
     Dosage: 600 MG/DAY
     Route: 048
  5. VINORELBINE [Concomitant]
     Dosage: UNK, UNK
     Route: 065
     Dates: start: 20010101, end: 20010101
  6. RADIOTHERAPY [Concomitant]
     Route: 065

REACTIONS (12)
  - ABSCESS ORAL [None]
  - BONE DISORDER [None]
  - DENTAL TREATMENT [None]
  - HYPERBARIC OXYGEN THERAPY [None]
  - INCISIONAL DRAINAGE [None]
  - LOCALISED INFECTION [None]
  - OSTEOLYSIS [None]
  - OSTEOMYELITIS [None]
  - OSTEONECROSIS [None]
  - PAIN IN JAW [None]
  - SEQUESTRECTOMY [None]
  - TOOTH EXTRACTION [None]
